FAERS Safety Report 11162247 (Version 1)
Quarter: 2015Q2

REPORT INFORMATION
  Report Type: Spontaneous
  Country: US (occurrence: None)
  Receive Date: 20150602
  Receipt Date: 20150602
  Transmission Date: 20150821
  Serious: Yes (Hospitalization)
  Sender: FDA-Public Use
  Company Number: FK201502481

PATIENT
  Age: 66 Year
  Sex: Female

DRUGS (3)
  1. ECULIZUMAB (ECULIZUMAB) [Concomitant]
  2. CARBOPLATIN (MANUFACTURER UNKNOWN) (CARBOPLATIN) (CARBOPLATIN) [Suspect]
     Active Substance: CARBOPLATIN
     Indication: CHOLANGIOCARCINOMA
     Dosage: 1 IN 3 WK
  3. GEMCITABINE (MANUFACTURER UNKNOWN) (GEMCITABINE) (GEMCITABINE) [Suspect]
     Active Substance: GEMCITABINE HYDROCHLORIDE
     Indication: CHOLANGIOCARCINOMA
     Dosage: 1 IN 3 WK

REACTIONS (7)
  - Renal failure [None]
  - Fatigue [None]
  - Anaemia [None]
  - Blood lactate dehydrogenase increased [None]
  - Confusional state [None]
  - Thrombotic microangiopathy [None]
  - Somnolence [None]
